FAERS Safety Report 11498603 (Version 1)
Quarter: 2015Q3

REPORT INFORMATION
  Report Type: Report from Study
  Country: GB (occurrence: GB)
  Receive Date: 20150912
  Receipt Date: 20150912
  Transmission Date: 20151125
  Serious: Yes (Other)
  Sender: FDA-Public Use
  Company Number: GB-BAXTER-2015BAX050278

PATIENT
  Sex: Female

DRUGS (3)
  1. CARBOPLATIN. [Suspect]
     Active Substance: CARBOPLATIN
     Indication: UTERINE CANCER
     Dosage: AUC 5
     Route: 042
  2. IFOSFAMIDE INJECTION 2G [Suspect]
     Active Substance: IFOSFAMIDE
     Indication: UTERINE CANCER
     Route: 042
  3. MESNA INJECTION [Suspect]
     Active Substance: MESNA
     Indication: UTERINE CANCER
     Route: 042

REACTIONS (1)
  - Disease progression [Unknown]
